FAERS Safety Report 21368441 (Version 1)
Quarter: 2022Q3

REPORT INFORMATION
  Report Type: Report from Study
  Country: US (occurrence: US)
  Receive Date: 20220923
  Receipt Date: 20220923
  Transmission Date: 20221027
  Serious: Yes (Hospitalization, Other)
  Sender: FDA-Public Use
  Company Number: US-GILEAD-2022-0598587

PATIENT
  Age: 69 Year
  Sex: Female

DRUGS (4)
  1. AMBRISENTAN [Suspect]
     Active Substance: AMBRISENTAN
     Indication: Pulmonary arterial hypertension
     Dosage: UNK
     Route: 065
  2. TREPROSTINIL SODIUM [Suspect]
     Active Substance: TREPROSTINIL SODIUM
     Indication: Pulmonary arterial hypertension
     Dosage: 0.030 UG/KG; CONTINUOUS
     Route: 058
     Dates: start: 2022, end: 20220728
  3. TREPROSTINIL SODIUM [Suspect]
     Active Substance: TREPROSTINIL SODIUM
     Dosage: 0.030 UG/KG, CONTINUOUS
     Route: 058
     Dates: start: 20220728
  4. TYVASO [Concomitant]
     Active Substance: TREPROSTINIL

REACTIONS (5)
  - Infusion site swelling [Recovering/Resolving]
  - Atrial fibrillation [Unknown]
  - Hypervolaemia [Unknown]
  - Atrial flutter [Unknown]
  - Infusion site pain [Recovering/Resolving]

NARRATIVE: CASE EVENT DATE: 20220906
